FAERS Safety Report 7229323-8 (Version None)
Quarter: 2011Q1

REPORT INFORMATION
  Report Type: 
  Country: None (occurrence: None)
  Receive Date: 20110117
  Receipt Date: 20110107
  Transmission Date: 20110831
  Serious: Yes (Death, Other)
  Sender: FDA-Public Use
  Company Number: JP-JNJFOC-20100604701

PATIENT
  Sex: Female
  Weight: 53 kg

DRUGS (33)
  1. DECADRON [Concomitant]
     Route: 042
  2. BERIZYM [Concomitant]
     Route: 048
  3. GOSHA-JINKI-GAN [Concomitant]
     Indication: PRODUCT USED FOR UNKNOWN INDICATION
     Route: 048
  4. MYSLEE [Concomitant]
     Route: 048
  5. DOXORUBICIN HCL [Suspect]
     Dosage: CYCLE 4
     Route: 042
  6. DECADRON [Concomitant]
     Route: 048
  7. MAGLAX [Concomitant]
     Indication: PRODUCT USED FOR UNKNOWN INDICATION
     Route: 048
  8. PRIMPERAN TAB [Concomitant]
     Route: 048
  9. DOXORUBICIN HCL [Suspect]
     Indication: OVARIAN CANCER RECURRENT
     Dosage: CYCLE 1
     Route: 042
  10. DOXORUBICIN HCL [Suspect]
     Dosage: CYCLE 2
     Route: 042
  11. DOXORUBICIN HCL [Suspect]
     Dosage: CYCLE 7
     Route: 042
  12. ZANTAC [Concomitant]
     Indication: PROPHYLAXIS
     Route: 042
  13. GLUCOSE [Concomitant]
     Indication: PRODUCT USED FOR UNKNOWN INDICATION
     Route: 042
  14. AFTACH [Concomitant]
     Indication: STOMATITIS
     Route: 003
  15. DOXORUBICIN HCL [Suspect]
     Dosage: CYCLE 5
     Route: 042
  16. DECADRON [Concomitant]
     Route: 042
  17. PYDOXAL [Concomitant]
     Indication: PRODUCT USED FOR UNKNOWN INDICATION
     Route: 048
  18. PANCREAZE [Concomitant]
     Indication: DYSPEPSIA
     Route: 048
  19. RINDERON-VG [Concomitant]
     Indication: PALMAR-PLANTAR ERYTHRODYSAESTHESIA SYNDROME
     Dosage: SUFFICIENT QUANTITY
     Route: 061
  20. BERIZYM [Concomitant]
     Indication: PRODUCT USED FOR UNKNOWN INDICATION
     Route: 048
  21. ISODINE [Concomitant]
     Indication: PRODUCT USED FOR UNKNOWN INDICATION
     Route: 049
  22. PRIMPERAN TAB [Concomitant]
     Route: 048
  23. DOXORUBICIN HCL [Suspect]
     Dosage: CYCLE 3
     Route: 042
  24. DOXORUBICIN HCL [Suspect]
     Dosage: CYCLE 6
     Route: 042
  25. BERIZYM [Concomitant]
     Route: 048
  26. MYSLEE [Concomitant]
     Route: 048
  27. PRIMPERAN TAB [Concomitant]
     Indication: PROPHYLAXIS
     Route: 048
  28. DECADRON [Concomitant]
     Indication: PRODUCT USED FOR UNKNOWN INDICATION
     Route: 048
  29. ZANTAC [Concomitant]
     Route: 042
  30. GLUCOSE [Concomitant]
     Route: 042
  31. UREPEARL [Concomitant]
     Indication: PALMAR-PLANTAR ERYTHRODYSAESTHESIA SYNDROME
     Dosage: SUFFICIENT QUANTITY
     Route: 061
  32. MYSLEE [Concomitant]
     Indication: PRODUCT USED FOR UNKNOWN INDICATION
     Route: 048
  33. ZESULAN [Concomitant]
     Indication: PRODUCT USED FOR UNKNOWN INDICATION
     Route: 048

REACTIONS (2)
  - OVARIAN CANCER [None]
  - NEUROPATHY PERIPHERAL [None]
